FAERS Safety Report 6203763-8 (Version None)
Quarter: 2009Q2

REPORT INFORMATION
  Report Type: 
  Country: None (occurrence: None)
  Receive Date: 20090521
  Receipt Date: 20090511
  Transmission Date: 20091009
  Serious: Yes (Hospitalization, Other)
  Sender: FDA-Public Use
  Company Number: 09-000770

PATIENT
  Age: 38 Year
  Sex: Female
  Weight: 73.5 kg

DRUGS (2)
  1. FEMCON FE [Suspect]
     Indication: OVARIAN CYST
     Dosage: 0.4 MG/35MCG, ORAL
     Route: 048
     Dates: start: 20090401
  2. FEMCON FE [Suspect]
     Indication: UTERINE LEIOMYOMA
     Dosage: 0.4 MG/35MCG, ORAL
     Route: 048
     Dates: start: 20090401

REACTIONS (12)
  - ABASIA [None]
  - ABDOMINAL PAIN UPPER [None]
  - ASTHENIA [None]
  - BLOOD PRESSURE DECREASED [None]
  - DEHYDRATION [None]
  - DIARRHOEA [None]
  - DIZZINESS [None]
  - DYSPNOEA [None]
  - FATIGUE [None]
  - NAUSEA [None]
  - SLUGGISHNESS [None]
  - VOMITING [None]
